FAERS Safety Report 5879186-8 (Version None)
Quarter: 2008Q3

REPORT INFORMATION
  Report Type: 
  Country: None (occurrence: None)
  Receive Date: 20080912
  Receipt Date: 20080909
  Transmission Date: 20090109
  Serious: Yes (Other)
  Sender: FDA-Public Use
  Company Number: SE-WYE-G02130208

PATIENT
  Sex: Female

DRUGS (5)
  1. EFFEXOR [Suspect]
     Indication: ANXIETY
     Dates: start: 20040101
  2. EFFEXOR [Interacting]
  3. EFFEXOR [Interacting]
     Dates: end: 20080101
  4. EFFEXOR [Interacting]
     Dates: start: 20080101
  5. ALCOHOL [Interacting]

REACTIONS (5)
  - ALCOHOL INTERACTION [None]
  - ANTISOCIAL BEHAVIOUR [None]
  - DELINQUENCY [None]
  - FATIGUE [None]
  - HALLUCINATION, AUDITORY [None]
